FAERS Safety Report 4880179-8 (Version None)
Quarter: 2006Q1

REPORT INFORMATION
  Report Type: 
  Country: None (occurrence: None)
  Receive Date: 20060111
  Receipt Date: 20060104
  Transmission Date: 20060701
  Serious: Yes (Other)
  Sender: FDA-Public Use
  Company Number: 2006002741

PATIENT
  Age: 77 Year
  Sex: Female
  Weight: 63.5036 kg

DRUGS (3)
  1. LIPITOR [Suspect]
     Indication: BLOOD CHOLESTEROL INCREASED
     Dosage: 5 MG (10 MG, 1 IN 1 D), ORAL
     Route: 048
  2. FOSAMAX [Concomitant]
  3. LEVOTHYROXINE SODIUM [Concomitant]

REACTIONS (5)
  - BLOOD URINE PRESENT [None]
  - DYSURIA [None]
  - HAEMORRHAGE URINARY TRACT [None]
  - MYALGIA [None]
  - MYOCARDIAL INFARCTION [None]
